FAERS Safety Report 18693872 (Version 1)
Quarter: 2021Q1

REPORT INFORMATION
  Report Type: Spontaneous
  Country: TW (occurrence: TW)
  Receive Date: 20210104
  Receipt Date: 20210104
  Transmission Date: 20210419
  Serious: Yes (Other)
  Sender: FDA-Public Use
  Company Number: TW-ASTRAZENECA-2020SF75281

PATIENT
  Age: 67 Year
  Sex: Male

DRUGS (5)
  1. IPRATROPIUM [Concomitant]
     Active Substance: IPRATROPIUM
  2. SALBUTAMOL [Concomitant]
     Active Substance: ALBUTEROL
  3. ESOMEPRAZOLE. [Suspect]
     Active Substance: ESOMEPRAZOLE MAGNESIUM
     Route: 048
  4. MORPHINE [Concomitant]
     Active Substance: MORPHINE
  5. FLOMOXEF [Concomitant]
     Active Substance: FLOMOXEF

REACTIONS (1)
  - Acute generalised exanthematous pustulosis [Recovered/Resolved]
